FAERS Safety Report 25047510 (Version 2)
Quarter: 2025Q1

REPORT INFORMATION
  Report Type: Spontaneous
  Country: US (occurrence: US)
  Receive Date: 20250306
  Receipt Date: 20250307
  Transmission Date: 20250409
  Serious: Yes (Hospitalization, Other)
  Sender: INTRABIO
  Company Number: US-IBO-202500041

PATIENT
  Age: 3 Year
  Sex: Female
  Weight: 14 kg

DRUGS (3)
  1. AQNEURSA [Suspect]
     Active Substance: ACETYLLEUCINE, L-
     Indication: Product used for unknown indication
     Route: 065
     Dates: start: 20241219
  2. URSODIOL [Concomitant]
     Active Substance: URSODIOL
     Indication: Product used for unknown indication
     Route: 065
  3. OMEPRAZOLE [Concomitant]
     Active Substance: OMEPRAZOLE
     Indication: Product used for unknown indication
     Route: 065

REACTIONS (3)
  - Hernia [Unknown]
  - Pneumonia [Recovering/Resolving]
  - Product prescribing issue [Unknown]

NARRATIVE: CASE EVENT DATE: 20250201
